FAERS Safety Report 24040715 (Version 1)
Quarter: 2024Q3

REPORT INFORMATION
  Report Type: Other
  Country: CN (occurrence: CN)
  Receive Date: 20240702
  Receipt Date: 20240702
  Transmission Date: 20241017
  Serious: Yes (Other)
  Sender: GE HEALTHCARE
  Company Number: CN-GE HEALTHCARE-2024CSU007097

PATIENT
  Age: 21 Year
  Sex: Male
  Weight: 105 kg

DRUGS (2)
  1. OMNIPAQUE [Suspect]
     Active Substance: IOHEXOL
     Indication: Computerised tomogram
     Dosage: 120 ML, TOTAL
     Route: 042
     Dates: start: 20240621, end: 20240621
  2. SODIUM CHLORIDE [Concomitant]
     Active Substance: SODIUM CHLORIDE
     Indication: Vehicle solution use
     Dosage: 60 ML, QD
     Route: 042
     Dates: start: 20240621, end: 20240621

REACTIONS (6)
  - Nasal obstruction [Recovering/Resolving]
  - Rhinorrhoea [Recovering/Resolving]
  - Lacrimation disorder [Recovering/Resolving]
  - Ocular hyperaemia [Recovering/Resolving]
  - Eyelid oedema [Recovering/Resolving]
  - Contrast media allergy [Recovering/Resolving]

NARRATIVE: CASE EVENT DATE: 20240621
